FAERS Safety Report 17673146 (Version 1)
Quarter: 2020Q3

REPORT INFORMATION
  Report Type: Other
  Country: GB (occurrence: GB)
  Receive Date: 20200416
  Receipt Date: 20200416
  Transmission Date: 20201105
  Serious: Yes (Other)
  Sender: FDA-Public Use
  Company Number: GB-CELLTRION INC.-2020GB021459

PATIENT

DRUGS (3)
  1. BENDAMUSTINE [Suspect]
     Active Substance: BENDAMUSTINE
     Indication: DIFFUSE LARGE B-CELL LYMPHOMA
     Dosage: 137.5 MG
     Route: 042
     Dates: start: 20200225, end: 20200225
  2. RITUXIMAB (UNKNOWN) [Suspect]
     Active Substance: RITUXIMAB
     Indication: DIFFUSE LARGE B-CELL LYMPHOMA
     Dosage: UNK
     Route: 042
     Dates: start: 20200225, end: 20200225
  3. POLATUZUMAB VEDOTIN. [Suspect]
     Active Substance: POLATUZUMAB VEDOTIN
     Indication: DIFFUSE LARGE B-CELL LYMPHOMA
     Dosage: 110 MG
     Route: 042
     Dates: start: 20200225, end: 20200225

REACTIONS (2)
  - Pulmonary embolism [Recovering/Resolving]
  - Liver function test abnormal [Recovering/Resolving]

NARRATIVE: CASE EVENT DATE: 20200309
